FAERS Safety Report 25224305 (Version 1)
Quarter: 2025Q2

REPORT INFORMATION
  Report Type: Spontaneous
  Country: US (occurrence: US)
  Receive Date: 20250422
  Receipt Date: 20250422
  Transmission Date: 20250716
  Serious: Yes (Death, Hospitalization, Other)
  Sender: AUROBINDO
  Company Number: US-APOTEX-2015AP009144

PATIENT
  Age: 67 Year
  Sex: Male

DRUGS (11)
  1. ACYCLOVIR [Suspect]
     Active Substance: ACYCLOVIR
     Indication: Prophylaxis
     Route: 048
  2. VALACYCLOVIR HYDROCHLORIDE [Suspect]
     Active Substance: VALACYCLOVIR HYDROCHLORIDE
     Indication: Varicella zoster virus infection
     Route: 065
  3. VALACYCLOVIR HYDROCHLORIDE [Suspect]
     Active Substance: VALACYCLOVIR HYDROCHLORIDE
     Route: 065
  4. ACYCLOVIR [Suspect]
     Active Substance: ACYCLOVIR
     Indication: Varicella zoster virus infection
     Route: 042
     Dates: start: 201009
  5. ACYCLOVIR [Suspect]
     Active Substance: ACYCLOVIR
     Route: 042
  6. ACYCLOVIR [Suspect]
     Active Substance: ACYCLOVIR
     Route: 048
  7. VARICELLA-ZOSTER VIRUS STRAIN OKA/MERCK LIVE ANTIGEN [Suspect]
     Active Substance: VARICELLA-ZOSTER VIRUS STRAIN OKA/MERCK LIVE ANTIGEN
     Indication: Immunisation
     Route: 065
     Dates: start: 201003
  8. AMPHOTERICIN B [Suspect]
     Active Substance: AMPHOTERICIN B
     Indication: Product used for unknown indication
     Route: 065
  9. MUMPS VIRUS VACCINE LIVE NOS [Concomitant]
     Active Substance: MUMPS VIRUS STRAIN B LEVEL JERYL LYNN LIVE ANTIGEN
     Indication: Immunisation
     Route: 065
     Dates: start: 201003
  10. Measles vaccine live attenuated [Concomitant]
     Indication: Immunisation
     Route: 065
     Dates: start: 201003
  11. RUBELLA VIRUS VACCINE LIVE ATTENUATED [Concomitant]
     Active Substance: RUBELLA VIRUS STRAIN WISTAR RA 27/3 LIVE ANTIGEN
     Indication: Immunisation
     Route: 065
     Dates: start: 201003

REACTIONS (13)
  - Haemophagocytic lymphohistiocytosis [Fatal]
  - Varicella zoster virus infection [Fatal]
  - Multiple organ dysfunction syndrome [Fatal]
  - Granuloma [Fatal]
  - Encephalopathy [Unknown]
  - Pathogen resistance [Unknown]
  - Pneumonia pneumococcal [Unknown]
  - Pancytopenia [Unknown]
  - Anuria [Unknown]
  - Renal failure [Unknown]
  - Jaundice [Unknown]
  - Hepatic enzyme increased [Unknown]
  - Asthenia [Unknown]

NARRATIVE: CASE EVENT DATE: 20100601
